FAERS Safety Report 9162518 (Version 1)
Quarter: 2013Q1

REPORT INFORMATION
  Report Type: Spontaneous
  Country: GB (occurrence: GB)
  Receive Date: 20130314
  Receipt Date: 20130314
  Transmission Date: 20140127
  Serious: Yes (Other)
  Sender: FDA-Public Use
  Company Number: GB-MYLANLABS-2013S1004874

PATIENT
  Age: 24 Year
  Sex: Female

DRUGS (5)
  1. FLUOXETINE [Suspect]
     Indication: DEPRESSION
     Dates: start: 200610, end: 200710
  2. SUBUTEX [Suspect]
     Indication: DRUG DEPENDENCE
     Route: 048
  3. RIBAVIRIN [Suspect]
  4. INTERFERON ALFA-2B [Suspect]
  5. HEROIN [Concomitant]
     Indication: PRODUCT USED FOR UNKNOWN INDICATION

REACTIONS (4)
  - Abortion spontaneous [Recovered/Resolved]
  - Exposure during pregnancy [Recovered/Resolved]
  - Exposure via father [Unknown]
  - Incorrect route of drug administration [Unknown]
